FAERS Safety Report 20869229 (Version 2)
Quarter: 2022Q2

REPORT INFORMATION
  Report Type: Spontaneous
  Country: JP (occurrence: JP)
  Receive Date: 20220524
  Receipt Date: 20220629
  Transmission Date: 20220721
  Serious: Yes (Disabling, Other)
  Sender: FDA-Public Use
  Company Number: JP-BAYER-2022A070954

PATIENT
  Age: 9 Decade
  Sex: Male

DRUGS (1)
  1. EYLEA [Suspect]
     Active Substance: AFLIBERCEPT
     Indication: Age-related macular degeneration
     Dosage: ADMINISTRATION EYE UNKNOWN, SOLUTION FOR INJECTION IN PRE-FILLED SYRINGE, STRENGTH: 40MG/ML
     Route: 031
     Dates: start: 20220512, end: 20220512

REACTIONS (4)
  - Visual impairment [Unknown]
  - Retinal detachment [Unknown]
  - Retinal artery occlusion [Unknown]
  - Non-infectious endophthalmitis [Unknown]

NARRATIVE: CASE EVENT DATE: 20220512
